FAERS Safety Report 4287354-4 (Version None)
Quarter: 2004Q1

REPORT INFORMATION
  Report Type: 
  Country: None (occurrence: None)
  Receive Date: 20040209
  Receipt Date: 20030527
  Transmission Date: 20041129
  Serious: No
  Sender: FDA-Public Use
  Company Number: US-GLAXOSMITHKLINE-A0409529A

PATIENT
  Age: 37 Year
  Sex: Female

DRUGS (1)
  1. PAXIL CR [Suspect]
     Route: 048
     Dates: start: 20020401

REACTIONS (2)
  - MIGRAINE [None]
  - PHOTOPHOBIA [None]
